FAERS Safety Report 8432553-0 (Version None)
Quarter: 2012Q2

REPORT INFORMATION
  Report Type: 
  Country: None (occurrence: None)
  Receive Date: 20120613
  Receipt Date: 20120601
  Transmission Date: 20120825
  Serious: Yes (Hospitalization)
  Sender: FDA-Public Use
  Company Number: IT-ELI_LILLY_AND_COMPANY-IT201202005580

PATIENT
  Sex: Male
  Weight: 90 kg

DRUGS (2)
  1. DIAZEPAM [Concomitant]
     Dosage: 200 MG, UNKNOWN
     Route: 048
     Dates: start: 20110606, end: 20110805
  2. OLANZAPINE [Suspect]
     Indication: SCHIZOPHRENIA, PARANOID TYPE
     Dosage: 300 MG, ONCE EVERY TWO WEEKS
     Route: 030
     Dates: start: 20110619, end: 20110805

REACTIONS (3)
  - SEDATION [None]
  - SCHIZOPHRENIA [None]
  - CONFUSIONAL STATE [None]
